FAERS Safety Report 7199019-X (Version None)
Quarter: 2010Q4

REPORT INFORMATION
  Report Type: 
  Country: None (occurrence: None)
  Receive Date: 20101228
  Receipt Date: 20101220
  Transmission Date: 20110411
  Serious: No
  Sender: FDA-Public Use
  Company Number: US-BIOGENIDEC-2010BI029822

PATIENT
  Age: 70 Year
  Sex: Female

DRUGS (1)
  1. TYSABRI [Suspect]
     Indication: MULTIPLE SCLEROSIS
     Route: 042
     Dates: start: 20091203

REACTIONS (6)
  - ALOPECIA [None]
  - ASTHENIA [None]
  - DERMATITIS PSORIASIFORM [None]
  - GAIT DISTURBANCE [None]
  - PSORIASIS [None]
  - URTICARIA [None]
